FAERS Safety Report 23484732 (Version 2)
Quarter: 2024Q1

REPORT INFORMATION
  Report Type: Spontaneous
  Country: US (occurrence: None)
  Receive Date: 20240206
  Receipt Date: 20240306
  Transmission Date: 20240409
  Serious: No
  Sender: FDA-Public Use
  Company Number: 2024A019586

PATIENT
  Sex: Male

DRUGS (1)
  1. SYMBICORT [Suspect]
     Active Substance: BUDESONIDE\FORMOTEROL FUMARATE DIHYDRATE
     Indication: Asthma
     Dosage: SYMBICORT 160/4.5 MCG 120 INHALATIONS UNKNOWN
     Route: 055

REACTIONS (4)
  - Asthma [Unknown]
  - Drug dose omission by device [Unknown]
  - Device use issue [Unknown]
  - Device delivery system issue [Unknown]
